FAERS Safety Report 14609914 (Version 1)
Quarter: 2018Q1

REPORT INFORMATION
  Report Type: Spontaneous
  Country: CN (occurrence: CN)
  Receive Date: 20180307
  Receipt Date: 20180307
  Transmission Date: 20180509
  Serious: Yes (Other)
  Sender: FDA-Public Use
  Company Number: CN-PFIZER INC-2018090436

PATIENT
  Age: 56 Year
  Sex: Female

DRUGS (4)
  1. COAPROVEL [Suspect]
     Active Substance: HYDROCHLOROTHIAZIDE\IRBESARTAN
     Indication: SUPRAVENTRICULAR TACHYCARDIA
     Dosage: 162.5 MG, 1X/DAY
     Route: 048
     Dates: start: 20090101, end: 20180116
  2. NORVASC [Suspect]
     Active Substance: AMLODIPINE BESYLATE
     Indication: HYPERTENSION
  3. COAPROVEL [Suspect]
     Active Substance: HYDROCHLOROTHIAZIDE\IRBESARTAN
     Indication: HYPERTENSION
  4. NORVASC [Suspect]
     Active Substance: AMLODIPINE BESYLATE
     Indication: SUPRAVENTRICULAR TACHYCARDIA
     Dosage: 2.5 MG, 1X/DAY
     Route: 048
     Dates: start: 20090101, end: 20180116

REACTIONS (1)
  - Hypokalaemia [Unknown]

NARRATIVE: CASE EVENT DATE: 20180114
